FAERS Safety Report 6510109-4 (Version None)
Quarter: 2009Q4

REPORT INFORMATION
  Report Type: 
  Country: None (occurrence: None)
  Receive Date: 20091217
  Receipt Date: 20091204
  Transmission Date: 20100525
  Serious: Yes (Life-Threatening, Hospitalization)
  Sender: FDA-Public Use
  Company Number: 2007AL003627

PATIENT
  Age: 72 Year
  Sex: Female

DRUGS (11)
  1. VERAPAMIL HCL [Suspect]
     Indication: DRUG USE FOR UNKNOWN INDICATION
     Dosage: 120 MG;QD;PO
     Route: 048
     Dates: start: 20070814, end: 20070817
  2. ITRACONAZOLE [Concomitant]
  3. ACICLOVIR [Concomitant]
  4. ACETYLSALICYLIC ACID [Concomitant]
  5. LANSOPRAZOLE [Concomitant]
  6. RITUXIMAB [Concomitant]
  7. LEVOTHYROXINE SODIUM [Concomitant]
  8. PRAMIPEXOLE DIHYDROCHLORIDE [Concomitant]
  9. ALLOPURINOL [Concomitant]
  10. MEROPENEM [Concomitant]
  11. CISPLATIN [Concomitant]

REACTIONS (2)
  - ARRHYTHMIA [None]
  - BRADYCARDIA [None]
